FAERS Safety Report 8145165-3 (Version None)
Quarter: 2012Q1

REPORT INFORMATION
  Report Type: 
  Country: None (occurrence: None)
  Receive Date: 20120217
  Receipt Date: 20120208
  Transmission Date: 20120608
  Serious: Yes (Hospitalization)
  Sender: FDA-Public Use
  Company Number: BE-ABBOTT-12P-013-0903090-00

PATIENT
  Sex: Male
  Weight: 95 kg

DRUGS (2)
  1. HUMIRA [Suspect]
     Indication: CROHN'S DISEASE
     Route: 058
     Dates: start: 20080916, end: 20111221
  2. BUDESONIDE [Concomitant]
     Indication: CROHN'S DISEASE

REACTIONS (3)
  - BALANCE DISORDER [None]
  - ASTHENIA [None]
  - SENSORIMOTOR DISORDER [None]
